FAERS Safety Report 6151325-3 (Version None)
Quarter: 2009Q2

REPORT INFORMATION
  Report Type: 
  Country: None (occurrence: None)
  Receive Date: 20090410
  Receipt Date: 20090330
  Transmission Date: 20091009
  Serious: Yes (Other)
  Sender: FDA-Public Use
  Company Number: CN-PFIZER INC-2009195508

PATIENT

DRUGS (1)
  1. CHAMPIX [Suspect]
     Indication: SMOKING CESSATION THERAPY
     Dosage: FREQUENCY: EVERY DAY
     Route: 048
     Dates: start: 20090327

REACTIONS (4)
  - COUGH [None]
  - HAEMOPTYSIS [None]
  - NAUSEA [None]
  - VOMITING [None]
